FAERS Safety Report 26189748 (Version 1)
Quarter: 2025Q4

REPORT INFORMATION
  Report Type: Spontaneous
  Country: US (occurrence: US)
  Receive Date: 20251223
  Receipt Date: 20251223
  Transmission Date: 20260118
  Serious: Yes (Hospitalization, Other)
  Sender: GE HEALTHCARE
  Company Number: US-GE HEALTHCARE-2025CSU017814

PATIENT
  Age: 69 Year
  Sex: Male
  Weight: 88.4 kg

DRUGS (1)
  1. OMNIPAQUE [Suspect]
     Active Substance: IOHEXOL
     Indication: Computerised tomogram abdomen
     Dosage: 100 ML, TOTAL
     Route: 065
     Dates: start: 20250910

REACTIONS (5)
  - Pulse absent [Recovering/Resolving]
  - Ocular hyperaemia [Recovering/Resolving]
  - Malaise [Recovering/Resolving]
  - Seizure [Recovering/Resolving]
  - Flushing [Recovering/Resolving]

NARRATIVE: CASE EVENT DATE: 20250910
